FAERS Safety Report 25785193 (Version 4)
Quarter: 2025Q4

REPORT INFORMATION
  Report Type: Spontaneous
  Country: EU (occurrence: EU)
  Receive Date: 20250910
  Receipt Date: 20251211
  Transmission Date: 20260117
  Serious: Yes (Other)
  Sender: AUROBINDO
  Company Number: EU-BIOVITRUM-2025-FR-010405

PATIENT
  Age: 16 Year
  Sex: Male
  Weight: 55 kg

DRUGS (20)
  1. SPIRONOLACTONE [Suspect]
     Active Substance: SPIRONOLACTONE
     Indication: Oedematous kidney
     Dosage: 100 MILLIGRAM, DAILY (ONCE DAILY)
     Dates: start: 202505, end: 20250818
  2. SPIRONOLACTONE [Suspect]
     Active Substance: SPIRONOLACTONE
     Indication: Renal injury
  3. SPIRONOLACTONE [Suspect]
     Active Substance: SPIRONOLACTONE
     Indication: C3 glomerulopathy
  4. PEGCETACOPLAN [Suspect]
     Active Substance: PEGCETACOPLAN
     Indication: C3 glomerulopathy
     Dosage: 1080 MILLIGRAM (1080MG (1BOTTLE / VIAL), 2X 1WEEK (TWICE WEEKLY))
  5. PREDNISONE [Concomitant]
     Active Substance: PREDNISONE
     Indication: Nephropathy
     Dosage: 5 MILLIGRAM, DAILY
  6. PREDNISONE [Concomitant]
     Active Substance: PREDNISONE
     Indication: C3 glomerulopathy
  7. MYCOPHENOLATE MOFETIL [Concomitant]
     Active Substance: MYCOPHENOLATE MOFETIL
     Indication: Nephropathy
     Dosage: 500 MILLIGRAM, TWO TIMES A DAY
     Dates: start: 202502
  8. MYCOPHENOLATE MOFETIL [Concomitant]
     Active Substance: MYCOPHENOLATE MOFETIL
     Indication: C3 glomerulopathy
     Dosage: 1000 MILLIGRAM 500MG MORNING AND EVENING
  9. ENALAPRIL [Concomitant]
     Active Substance: ENALAPRIL
     Indication: Nephropathy
     Dosage: 10 MILLIGRAM, DAILY
  10. ENALAPRIL [Concomitant]
     Active Substance: ENALAPRIL
     Indication: C3 glomerulopathy
  11. SODIUM BICARBONATE [Concomitant]
     Active Substance: SODIUM BICARBONATE
     Indication: Nephropathy
     Dosage: 500 MILLIGRAM, 3 TIMES A DAY (3 TIMES DAILY)
     Dates: start: 202507
  12. SODIUM BICARBONATE [Concomitant]
     Active Substance: SODIUM BICARBONATE
     Indication: C3 glomerulopathy
     Dosage: 1500 MILLIGRAM ( 500MG MORNING, NOON, AND EVENING)
  13. ECULIZUMAB [Concomitant]
     Active Substance: ECULIZUMAB
     Indication: C3 glomerulopathy
     Dosage: 1200 MILLIGRAM (1200 MG PER 15 DAYS, LAST ADMINISTRATION WAS ON 31-JUL-2025 AND WOULD BE COMPLETED ON 28-AUG-2025, EVERY TWO WEEKS)
  14. CHOLECALCIFEROL [4]
     Active Substance: CHOLECALCIFEROL
     Indication: C3 glomerulopathy
     Dosage: 50000 INTERNATIONAL UNIT (50000 IU 1 AMPOULE EVERY MONDAYS)
  15. ALFACALCIDOL [Concomitant]
     Active Substance: ALFACALCIDOL
     Indication: C3 glomerulopathy
     Dosage: 1 MICROGRAM, DAILY
     Route: 065
  16. ALFACALCIDOL [Concomitant]
     Active Substance: ALFACALCIDOL
     Dosage: 1 DOSAGE FORM, DAILY
  17. Calcidose [Concomitant]
     Indication: C3 glomerulopathy
     Dosage: 500 MILLIGRAM, ONCE A DAY (500 MG 1 SACHET ONCE DAILY)
  18. Oracilin [Concomitant]
     Indication: Product used for unknown indication
     Dosage: 1000000 INTERNATIONAL UNIT, TWO TIMES A DAY
     Route: 065
     Dates: start: 20250731, end: 20250814
  19. FUROSEMIDE [Concomitant]
     Active Substance: FUROSEMIDE
     Indication: C3 glomerulopathy
     Dosage: 80 MILLIGRAM
  20. PENICILLIN V [Concomitant]
     Active Substance: PENICILLIN V
     Indication: Antibiotic prophylaxis
     Dosage: 2000000 INTERNATIONAL UNIT (1CP DE 1000000UI MORNING AND EVENING )

REACTIONS (12)
  - Dizziness [Recovered/Resolved]
  - Tension headache [Recovered/Resolved]
  - Alopecia [Not Recovered/Not Resolved]
  - Condition aggravated [Not Recovered/Not Resolved]
  - Gynaecomastia [Unknown]
  - Erythema [Recovering/Resolving]
  - Extravasation [Recovered/Resolved]
  - Headache [Recovered/Resolved]
  - Injection site swelling [Unknown]
  - Injection site erythema [Recovered/Resolved]
  - Injection site pain [Recovered/Resolved]
  - Off label use [Not Recovered/Not Resolved]

NARRATIVE: CASE EVENT DATE: 20250731
